FAERS Safety Report 10945472 (Version 3)
Quarter: 2015Q2

REPORT INFORMATION
  Report Type: Spontaneous
  Country: US (occurrence: US)
  Receive Date: 20150323
  Receipt Date: 20150501
  Transmission Date: 20150821
  Serious: Yes (Hospitalization, Disabling)
  Sender: FDA-Public Use
  Company Number: US-UNITED THERAPEUTICS-UNT-2015-002967

PATIENT
  Age: 51 Year
  Sex: Male
  Weight: 249.43 kg

DRUGS (6)
  1. REMODULIN [Suspect]
     Active Substance: TREPROSTINIL
     Dosage: 0.04167 ?G/KG, CONTINUING
     Route: 058
     Dates: start: 20150216
  2. REMODULIN [Suspect]
     Active Substance: TREPROSTINIL
     Dosage: 0.04027 ?G/KG, CONTINUING
     Route: 058
     Dates: start: 20150216
  3. REMODULIN [Suspect]
     Active Substance: TREPROSTINIL
     Indication: PULMONARY ARTERIAL HYPERTENSION
     Dosage: 0.04167 ?G/KG, CONTINUING
     Route: 058
     Dates: start: 20150123
  4. REMODULIN [Suspect]
     Active Substance: TREPROSTINIL
     Dosage: 0.04305 ?G/KG, CONTINUING
     Route: 058
     Dates: start: 20150216
  5. GABAPENTIN. [Suspect]
     Active Substance: GABAPENTIN
     Indication: PRODUCT USED FOR UNKNOWN INDICATION
  6. TRACLEER [Concomitant]
     Active Substance: BOSENTAN\BOSENTAN MONOHYDRATE
     Indication: PRODUCT USED FOR UNKNOWN INDICATION

REACTIONS (7)
  - Nervous system disorder [Unknown]
  - Dysstasia [Unknown]
  - Muscle spasms [Unknown]
  - Bedridden [Unknown]
  - Infusion site pain [Not Recovered/Not Resolved]
  - Fall [Unknown]
  - Blister [Unknown]

NARRATIVE: CASE EVENT DATE: 201503
